FAERS Safety Report 19901928 (Version 3)
Quarter: 2021Q4

REPORT INFORMATION
  Report Type: Spontaneous
  Country: US (occurrence: US)
  Receive Date: 20210930
  Receipt Date: 20211109
  Transmission Date: 20220303
  Serious: No
  Sender: FDA-Public Use
  Company Number: US-PFIZER INC-202101225737

PATIENT
  Age: 22 Year
  Sex: Female

DRUGS (1)
  1. DEPO-PROVERA [Suspect]
     Active Substance: MEDROXYPROGESTERONE ACETATE
     Indication: Contraception
     Dosage: 0.65 ML
     Route: 058

REACTIONS (4)
  - Product administration error [Unknown]
  - Drug dose omission by device [Unknown]
  - Device leakage [Unknown]
  - Needle issue [Unknown]
